FAERS Safety Report 4779362-1 (Version None)
Quarter: 2005Q3

REPORT INFORMATION
  Report Type: 
  Country: None (occurrence: None)
  Receive Date: 20050914
  Receipt Date: 20050629
  Transmission Date: 20060218
  Serious: Yes (Other)
  Sender: FDA-Public Use
  Company Number: 409465

PATIENT
  Age: 73 Year
  Sex: Female
  Weight: 61.2 kg

DRUGS (5)
  1. BONIVA [Suspect]
     Indication: OSTEOPENIA
     Dosage: 1 PER MONTH ORAL
     Route: 048
     Dates: start: 20050328, end: 20050628
  2. ACIPHEX [Concomitant]
  3. TOPROL-XL [Concomitant]
  4. LIPITOR [Concomitant]
  5. STEROID (STEROID NOS) [Concomitant]

REACTIONS (3)
  - DYSAESTHESIA [None]
  - PARAESTHESIA [None]
  - PRURITUS [None]
